FAERS Safety Report 16699319 (Version 2)
Quarter: 2019Q3

REPORT INFORMATION
  Report Type: Report from Study
  Country: US (occurrence: US)
  Receive Date: 20190813
  Receipt Date: 20190919
  Transmission Date: 20191004
  Serious: Yes (Hospitalization, Other)
  Sender: FDA-Public Use
  Company Number: US-JNJFOC-20190311405

PATIENT
  Sex: Male

DRUGS (7)
  1. IMBRUVICA [Suspect]
     Active Substance: IBRUTINIB
     Indication: CHRONIC LYMPHOCYTIC LEUKAEMIA
     Route: 065
  2. IMBRUVICA [Interacting]
     Active Substance: IBRUTINIB
     Route: 048
     Dates: start: 20190620
  3. IMBRUVICA [Interacting]
     Active Substance: IBRUTINIB
     Route: 048
     Dates: start: 20190425
  4. PLAVIX [Suspect]
     Active Substance: CLOPIDOGREL BISULFATE
     Indication: PRODUCT USED FOR UNKNOWN INDICATION
     Route: 065
  5. IMBRUVICA [Interacting]
     Active Substance: IBRUTINIB
     Route: 048
     Dates: start: 20190301
  6. IMBRUVICA [Interacting]
     Active Substance: IBRUTINIB
     Route: 048
     Dates: start: 20190301
  7. IMBRUVICA [Interacting]
     Active Substance: IBRUTINIB
     Route: 048
     Dates: start: 20190328

REACTIONS (25)
  - Haemorrhage [Not Recovered/Not Resolved]
  - Flatulence [Recovered/Resolved]
  - Pain [Unknown]
  - Blood glucose abnormal [Unknown]
  - Decreased appetite [Not Recovered/Not Resolved]
  - Gastrointestinal infection [Unknown]
  - Asthenia [Not Recovered/Not Resolved]
  - Neuropathy peripheral [Unknown]
  - Drug interaction [Unknown]
  - Nausea [Recovered/Resolved]
  - Haemoglobin decreased [Unknown]
  - Dry skin [Unknown]
  - Lung infection [Not Recovered/Not Resolved]
  - Headache [Unknown]
  - Peripheral coldness [Unknown]
  - White blood cell count increased [Recovering/Resolving]
  - Platelet count decreased [Unknown]
  - Pneumonia [Unknown]
  - Confusional state [Unknown]
  - Bipolar I disorder [Not Recovered/Not Resolved]
  - Fatigue [Not Recovered/Not Resolved]
  - Malaise [Unknown]
  - Full blood count increased [Unknown]
  - Lymphadenopathy [Unknown]
  - Infection [Not Recovered/Not Resolved]
